FAERS Safety Report 16069232 (Version 1)
Quarter: 2019Q1

REPORT INFORMATION
  Report Type: Spontaneous
  Country: US (occurrence: US)
  Receive Date: 20190313
  Receipt Date: 20190313
  Transmission Date: 20190418
  Serious: No
  Sender: FDA-Public Use
  Company Number: US-TEVA-2019-US-1014014

PATIENT
  Sex: Female

DRUGS (1)
  1. TRI-LO SPRINTEC [Suspect]
     Active Substance: ETHINYL ESTRADIOL\NORGESTIMATE
     Indication: CONTRACEPTION
     Dosage: DOSE STRENGTH: 0.18/0.25; 0.215/0.035; 0.250/
     Route: 065
     Dates: start: 201811

REACTIONS (4)
  - Product substitution issue [Unknown]
  - Acne [Unknown]
  - Depression [Unknown]
  - Weight increased [Unknown]

NARRATIVE: CASE EVENT DATE: 201811
